FAERS Safety Report 10691746 (Version 1)
Quarter: 2015Q1

REPORT INFORMATION
  Report Type: Spontaneous
  Country: US (occurrence: US)
  Receive Date: 20150105
  Receipt Date: 20150105
  Transmission Date: 20150720
  Serious: No
  Sender: FDA-Public Use
  Company Number: US-GLAXOSMITHKLINE-A1081961A

PATIENT

DRUGS (19)
  1. METFORMIN [Concomitant]
     Active Substance: METFORMIN HYDROCHLORIDE
  2. ALPHALIPOIC ACID [Concomitant]
  3. CALCIUM [Concomitant]
     Active Substance: CALCIUM
  4. MAGNESIUM [Concomitant]
     Active Substance: MAGNESIUM
  5. VITAMIN A [Concomitant]
     Active Substance: VITAMIN A
  6. JANUVIA [Concomitant]
     Active Substance: SITAGLIPTIN PHOSPHATE
  7. VITAMIN B [Concomitant]
     Active Substance: VITAMIN B
  8. VITAMIN C [Concomitant]
     Active Substance: ASCORBIC ACID
  9. VITAMIN D [Concomitant]
     Active Substance: CHOLECALCIFEROL
  10. ALBUTEROL NEBULIZER [Concomitant]
     Active Substance: ALBUTEROL
  11. ZINC [Concomitant]
     Active Substance: ZINC\ZINC CHLORIDE
  12. VITAMIN A [Concomitant]
     Active Substance: VITAMIN A
  13. LOVAZA [Suspect]
     Active Substance: OMEGA-3-ACID ETHYL ESTERS
     Indication: BLOOD TRIGLYCERIDES INCREASED
     Route: 048
     Dates: start: 200607, end: 20140601
  14. GLUCOTROL [Concomitant]
     Active Substance: GLIPIZIDE
  15. ONE-A-DAY NOS [Concomitant]
     Active Substance: MINERALS\VITAMINS
  16. UNKNOWN [Concomitant]
     Active Substance: UNSPECIFIED INGREDIENT
  17. PRILOSEC [Concomitant]
     Active Substance: OMEPRAZOLE MAGNESIUM
  18. FLAX SEED [Concomitant]
     Active Substance: FLAX SEED
  19. INSULIN [Concomitant]
     Active Substance: INSULIN NOS

REACTIONS (1)
  - Therapeutic response unexpected [Unknown]
